FAERS Safety Report 23503723 (Version 1)
Quarter: 2024Q1

REPORT INFORMATION
  Report Type: Spontaneous
  Country: US (occurrence: US)
  Receive Date: 20240209
  Receipt Date: 20240209
  Transmission Date: 20240410
  Serious: No
  Sender: FDA-Public Use
  Company Number: US-ABBVIE-5623499

PATIENT
  Sex: Female

DRUGS (2)
  1. LUMIGAN [Suspect]
     Active Substance: BIMATOPROST
     Indication: Intraocular pressure test
     Dosage: FORM STRENGTH 0.1MG/ML SOL
     Route: 047
  2. LUMIGAN [Suspect]
     Active Substance: BIMATOPROST
     Indication: Glaucoma

REACTIONS (5)
  - Eye colour change [Unknown]
  - Swelling of eyelid [Unknown]
  - Expired product administered [Unknown]
  - Dry eye [Unknown]
  - Eyelid pain [Unknown]
